FAERS Safety Report 13317890 (Version 1)
Quarter: 2017Q1

REPORT INFORMATION
  Report Type: Spontaneous
  Country: US (occurrence: US)
  Receive Date: 20170309
  Receipt Date: 20170309
  Transmission Date: 20170428
  Serious: Yes (Hospitalization, Disabling)
  Sender: FDA-Public Use
  Company Number: None

PATIENT
  Age: 38 Year
  Sex: Female
  Weight: 63 kg

DRUGS (11)
  1. PROBIOTICS [Concomitant]
     Active Substance: PROBIOTICS NOS
  2. ZYRTEC [Concomitant]
     Active Substance: CETIRIZINE HYDROCHLORIDE
  3. CALCIUM [Concomitant]
     Active Substance: CALCIUM
  4. FISH OIL [Concomitant]
     Active Substance: FISH OIL
  5. BETAINE HCL [Concomitant]
  6. TRANEXAMIC ACID. [Concomitant]
     Active Substance: TRANEXAMIC ACID
  7. VITAMIN D3 [Concomitant]
     Active Substance: CHOLECALCIFEROL
  8. IGG PROTECT [Concomitant]
  9. CIPROFLOXACIN. [Suspect]
     Active Substance: CIPROFLOXACIN
     Indication: ANTIBIOTIC PROPHYLAXIS
     Dosage: ?          OTHER FREQUENCY:200 ML/HR PREOP;?
     Route: 042
     Dates: start: 20160922, end: 20160922
  10. FLONASE [Concomitant]
     Active Substance: FLUTICASONE PROPIONATE
  11. MAGNESIUM [Concomitant]
     Active Substance: MAGNESIUM

REACTIONS (9)
  - Tendon pain [None]
  - Pain [None]
  - Pain in extremity [None]
  - Insomnia [None]
  - Eye pain [None]
  - Back pain [None]
  - Fatigue [None]
  - Fibromyalgia [None]
  - Photophobia [None]

NARRATIVE: CASE EVENT DATE: 20160922
